FAERS Safety Report 18640923 (Version 1)
Quarter: 2020Q4

REPORT INFORMATION
  Report Type: Spontaneous
  Country: US (occurrence: US)
  Receive Date: 20201221
  Receipt Date: 20201221
  Transmission Date: 20210114
  Serious: No
  Sender: FDA-Public Use
  Company Number: US-CELLTRION INC.-2020US031852

PATIENT

DRUGS (16)
  1. TRUXIMA [Suspect]
     Active Substance: RITUXIMAB-ABBS
     Dosage: 400 MG, IVPB D2 Q21 (SPLIT DOSE)
     Route: 042
     Dates: start: 20200826
  2. LOSARTAN POTASSIUM. [Concomitant]
     Active Substance: LOSARTAN POTASSIUM
     Dosage: 100MG , ORAL, ONCE DAILY
     Route: 048
  3. CALQUENCE [Concomitant]
     Active Substance: ACALABRUTINIB
     Dosage: 100MG, ORAL 1 EVERY 12 HOURS
     Route: 048
  4. TRUXIMA [Suspect]
     Active Substance: RITUXIMAB-ABBS
     Indication: MANTLE CELL LYMPHOMA
     Dosage: 798.8 MG, IVPB Q21
     Route: 042
     Dates: start: 20200804
  5. IMBRUVICA [Concomitant]
     Active Substance: IBRUTINIB
     Indication: CHEMOTHERAPY
     Dosage: 560MG, ORAL ONCE DAILY
     Route: 048
  6. GRANISETRON [GRANISETRON HYDROCHLORIDE] [Concomitant]
     Active Substance: GRANISETRON HYDROCHLORIDE
     Indication: NAUSEA
     Dosage: 1MG, ORAL, Q 24HRS PRN
     Route: 048
  7. ACYCLOVIR [ACICLOVIR] [Concomitant]
     Active Substance: ACYCLOVIR
     Indication: PROPHYLAXIS
     Dosage: 400MG, ORAL, ONCE DAILY
     Route: 048
  8. LORAZEPAM. [Concomitant]
     Active Substance: LORAZEPAM
     Dosage: 1MG, ORAL, ONCE DAILY PRN
     Route: 048
  9. VENCLEXTA [Concomitant]
     Active Substance: VENETOCLAX
     Dosage: STARTING PACK 10+ 50 + 100MG ORAL TABLET THERAPY PACK
     Route: 048
  10. ONDANSETRON [Concomitant]
     Active Substance: ONDANSETRON
     Indication: NAUSEA
     Dosage: 8MG ODT, ORAL 1 TAB ON TOUGUE EVERY 8 HRS PRN
     Route: 048
  11. MONTELUKAST SODIUM. [Concomitant]
     Active Substance: MONTELUKAST SODIUM
     Dosage: 10MG, ORAL, 1 PILL DAY -1, 1, 2 OF RITUXIMAB THERAPY
     Route: 048
  12. TRUXIMA [Suspect]
     Active Substance: RITUXIMAB-ABBS
     Dosage: 400 MG, IVPB D2 Q21 (SPLIT DOSE)
     Route: 042
     Dates: start: 20200826
  13. ATORVASTATIN CALCIUM. [Concomitant]
     Active Substance: ATORVASTATIN CALCIUM
     Dosage: 10MG, ORAL, ONCE DAILY
     Route: 048
  14. MECLIZINE HCL [Concomitant]
     Active Substance: MECLIZINE HYDROCHLORIDE
     Indication: VERTIGO
     Dosage: 25MG, ORAL, 1/2 - 1 TABLET Q12 HOUR PRN
     Route: 048
  15. ALLOPURINOL. [Concomitant]
     Active Substance: ALLOPURINOL
     Indication: GOUT
     Dosage: 300MG, ORAL, ONCE DAILY
     Route: 048
  16. METOPROLOL TARTRATE. [Concomitant]
     Active Substance: METOPROLOL TARTRATE
     Dosage: 25MG, PO, ONCE DAILY
     Route: 048

REACTIONS (5)
  - Flushing [Unknown]
  - Urticaria [Unknown]
  - Pruritus [Unknown]
  - Off label use [Unknown]
  - Chills [Recovered/Resolved]
